FAERS Safety Report 4801123-5 (Version None)
Quarter: 2005Q4

REPORT INFORMATION
  Report Type: 
  Country: None (occurrence: None)
  Receive Date: 20051011
  Receipt Date: 20051003
  Transmission Date: 20060501
  Serious: Yes (Life-Threatening, Hospitalization)
  Sender: FDA-Public Use
  Company Number: 2005-133252-NL

PATIENT
  Sex: Female

DRUGS (1)
  1. MIRTAZAPINE [Suspect]
     Dosage: ORAL
     Route: 048

REACTIONS (1)
  - SUICIDE ATTEMPT [None]
